FAERS Safety Report 5816368-5 (Version None)
Quarter: 2008Q3

REPORT INFORMATION
  Report Type: 
  Country: None (occurrence: None)
  Receive Date: 20080721
  Receipt Date: 20080314
  Transmission Date: 20090109
  Serious: No
  Sender: FDA-Public Use
  Company Number: US-BAUSCH-2008BL001139

PATIENT
  Age: 36 Year
  Sex: Male
  Weight: 99 kg

DRUGS (4)
  1. OPCON-A [Suspect]
     Indication: EYE ALLERGY
     Route: 047
     Dates: start: 20080313, end: 20080313
  2. PROVENTIL /USA/ [Concomitant]
     Indication: ASTHMA
     Dates: start: 20030314
  3. ADVAIR DISKUS 100/50 [Concomitant]
     Indication: ASTHMA
     Dates: start: 20030314
  4. SINGULAIR [Concomitant]
     Indication: ASTHMA
     Dates: start: 20030314

REACTIONS (2)
  - EYELID OEDEMA [None]
  - OCULAR DISCOMFORT [None]
